FAERS Safety Report 14972231 (Version 1)
Quarter: 2018Q2

REPORT INFORMATION
  Report Type: Spontaneous
  Country: FR (occurrence: FR)
  Receive Date: 20180605
  Receipt Date: 20180605
  Transmission Date: 20180711
  Serious: Yes (Other)
  Sender: FDA-Public Use
  Company Number: FR-TEVA-2018-FR-898368

PATIENT
  Sex: Male

DRUGS (2)
  1. CABERGOLINE. [Suspect]
     Active Substance: CABERGOLINE
     Indication: PITUITARY TUMOUR BENIGN
     Dosage: TWO TABLETS PER WEEK TAKEN DURING MORE THAN TEN YEARS
  2. CABERGOLINE. [Suspect]
     Active Substance: CABERGOLINE
     Dosage: TWO TABLETS PER MONTH TAKEN DURING ABOUT THREE YEARS

REACTIONS (3)
  - Drug prescribing error [Unknown]
  - Pericardial effusion [Not Recovered/Not Resolved]
  - Pleural effusion [Unknown]
